FAERS Safety Report 16690242 (Version 9)
Quarter: 2024Q2

REPORT INFORMATION
  Report Type: Spontaneous
  Country: US (occurrence: US)
  Receive Date: 20190809
  Receipt Date: 20240412
  Transmission Date: 20240716
  Serious: Yes (Death, Hospitalization, Other)
  Sender: FDA-Public Use
  Company Number: US-VIFOR (INTERNATIONAL) INC.-VIT-2019-07813

PATIENT
  Sex: Female

DRUGS (8)
  1. MIRCERA [Suspect]
     Active Substance: METHOXY POLYETHYLENE GLYCOL-EPOETIN BETA
     Indication: Product used for unknown indication
     Dosage: FULL DOSE (MONTHLY) EVERY TWO WEEKS.
  2. ARANESP [Concomitant]
     Active Substance: DARBEPOETIN ALFA
  3. ARANESP [Concomitant]
     Active Substance: DARBEPOETIN ALFA
  4. ARANESP [Concomitant]
     Active Substance: DARBEPOETIN ALFA
  5. ARANESP [Concomitant]
     Active Substance: DARBEPOETIN ALFA
  6. ARANESP [Concomitant]
     Active Substance: DARBEPOETIN ALFA
  7. ELIQUIS [Concomitant]
     Active Substance: APIXABAN
     Dates: start: 20190910
  8. BETADINE [Concomitant]
     Active Substance: POVIDONE-IODINE

REACTIONS (11)
  - Overdose [Fatal]
  - Ill-defined disorder [Unknown]
  - Hypovolaemia [Unknown]
  - Bone marrow failure [Unknown]
  - Seizure [Unknown]
  - Hypervolaemia [Unknown]
  - Myocardial infarction [Unknown]
  - Cardiac failure [Unknown]
  - Hypertension [Recovering/Resolving]
  - Product dispensing error [Unknown]
  - Diarrhoea [Unknown]
